FAERS Safety Report 13835922 (Version 3)
Quarter: 2017Q4

REPORT INFORMATION
  Report Type: Spontaneous
  Country: US (occurrence: US)
  Receive Date: 20170804
  Receipt Date: 20171123
  Transmission Date: 20180320
  Serious: No
  Sender: FDA-Public Use
  Company Number: US-ELI_LILLY_AND_COMPANY-US201708001823

PATIENT
  Age: 55 Year
  Sex: Female

DRUGS (5)
  1. METFORMIN [Concomitant]
     Active Substance: METFORMIN HYDROCHLORIDE
     Indication: PRODUCT USED FOR UNKNOWN INDICATION
     Dosage: UNK, UNKNOWN
     Route: 065
  2. HUMATROPE [Suspect]
     Active Substance: SOMATROPIN
     Indication: GROWTH HORMONE DEFICIENCY
     Dosage: 0.2 MG, DAILY
     Route: 058
     Dates: start: 20170726
  3. HUMATROPE [Suspect]
     Active Substance: SOMATROPIN
     Indication: HYPOPITUITARISM
     Dosage: 0.075 MG, UNK
     Route: 058
  4. HUMATROPE [Suspect]
     Active Substance: SOMATROPIN
     Dosage: 0.1 MG, DAILY
     Route: 058
  5. ARMOUR THYROID [Concomitant]
     Active Substance: THYROID, PORCINE
     Indication: PRODUCT USED FOR UNKNOWN INDICATION
     Dosage: UNK, UNKNOWN
     Route: 065

REACTIONS (8)
  - Pain [Unknown]
  - Feeling abnormal [Unknown]
  - Drug dose omission [Unknown]
  - Somnolence [Unknown]
  - Insomnia [Unknown]
  - Intentional product use issue [Unknown]
  - Wrong technique in product usage process [Unknown]
  - Fatigue [Unknown]

NARRATIVE: CASE EVENT DATE: 20171002
